FAERS Safety Report 7122625-5 (Version None)
Quarter: 2010Q4

REPORT INFORMATION
  Report Type: 
  Country: None (occurrence: None)
  Receive Date: 20101124
  Receipt Date: 20101122
  Transmission Date: 20110411
  Serious: Yes (Death, Life-Threatening, Hospitalization)
  Sender: FDA-Public Use
  Company Number: US-ABBOTT-10P-163-0687169-00

PATIENT
  Sex: Male

DRUGS (9)
  1. HUMIRA [Suspect]
     Indication: PSORIASIS
     Route: 058
     Dates: start: 20100701
  2. HUMIRA [Suspect]
     Route: 058
  3. ZEBETA [Concomitant]
     Indication: HYPERTENSION
     Dates: start: 20000101
  4. LEVOTHYROXINE SODIUM [Concomitant]
     Indication: HYPOTHYROIDISM
     Dates: start: 20000101
  5. METOPROLOL SUCCINATE [Concomitant]
     Indication: HYPERTENSION
  6. SIMVASTATIN [Concomitant]
     Indication: HYPERCHOLESTEROLAEMIA
     Dates: start: 20000101
  7. WARFARIN [Concomitant]
     Indication: CEREBROVASCULAR ACCIDENT PROPHYLAXIS
     Dates: start: 20030101
  8. GALANTAMINE HYDROBROMIDE [Concomitant]
     Indication: DEMENTIA
     Dates: start: 20030101
  9. PREDNISONE [Concomitant]
     Indication: ARTHRITIS
     Dates: start: 20060101

REACTIONS (1)
  - DIVERTICULITIS [None]
